FAERS Safety Report 15456386 (Version 2)
Quarter: 2018Q4

REPORT INFORMATION
  Report Type: Spontaneous
  Country: FR (occurrence: FR)
  Receive Date: 20181002
  Receipt Date: 20181010
  Transmission Date: 20190204
  Serious: Yes (Death, Other)
  Sender: FDA-Public Use
  Company Number: FR-JAZZ-2018-FR-014435

PATIENT

DRUGS (9)
  1. NICARDIPINE [Concomitant]
     Active Substance: NICARDIPINE
     Indication: PULMONARY ARTERIAL HYPERTENSION
     Dosage: LP 50, QD
     Route: 048
     Dates: start: 20180821, end: 20180831
  2. TRANEXAMIC ACID. [Concomitant]
     Active Substance: TRANEXAMIC ACID
     Indication: HAEMATURIA
     Dosage: 3 G, QD
     Route: 042
     Dates: start: 20180819, end: 20180831
  3. TRANEXAMIC ACID. [Concomitant]
     Active Substance: TRANEXAMIC ACID
     Indication: THROMBOCYTOPENIA
  4. VANCOMYCIN [Concomitant]
     Active Substance: VANCOMYCIN
     Indication: PYREXIA
     Dosage: 25 G, QD
     Route: 042
     Dates: start: 20180828, end: 20180831
  5. HYDROXYZINE [Concomitant]
     Active Substance: HYDROXYZINE HYDROCHLORIDE
     Indication: SLEEP DISORDER
     Dosage: 25 MG, QD
     Route: 048
     Dates: start: 20180809, end: 20180831
  6. VORICONAZOLE. [Concomitant]
     Active Substance: VORICONAZOLE
     Indication: ASPERGILLUS INFECTION
     Dosage: 600 MG, QD
     Route: 042
     Dates: start: 20180822, end: 20180831
  7. VYXEOS [Suspect]
     Active Substance: CYTARABINE\DAUNORUBICIN
     Indication: ACUTE MYELOID LEUKAEMIA
     Dosage: 44 MG/M2, UNK
     Route: 042
     Dates: start: 20180820
  8. CEFTAZIDIME. [Concomitant]
     Active Substance: CEFTAZIDIME
     Indication: LUNG DISORDER
     Dosage: 6 G, QD
     Route: 042
     Dates: start: 20180821, end: 20180831
  9. NEFOPAM [Concomitant]
     Active Substance: NEFOPAM
     Indication: PAIN
     Dosage: 120 MG, QD
     Route: 042
     Dates: start: 20180812, end: 20180831

REACTIONS (3)
  - Bronchopulmonary aspergillosis [Unknown]
  - Lung disorder [Unknown]
  - Cardiac arrest [Fatal]

NARRATIVE: CASE EVENT DATE: 201808
